FAERS Safety Report 19061431 (Version 3)
Quarter: 2021Q2

REPORT INFORMATION
  Report Type: Spontaneous
  Country: SE (occurrence: SE)
  Receive Date: 20210325
  Receipt Date: 20210513
  Transmission Date: 20210717
  Serious: Yes (Other)
  Sender: FDA-Public Use
  Company Number: SE-ALLERGAN-2112170US

PATIENT
  Sex: Male

DRUGS (6)
  1. GANFORT [Suspect]
     Active Substance: BIMATOPROST\TIMOLOL
     Indication: OCULAR HYPERTENSION
     Dosage: 1 GTT, QPM
     Route: 047
     Dates: start: 20200511, end: 20210319
  2. HEART MEDICATION [Concomitant]
     Active Substance: UNSPECIFIED INGREDIENT
  3. GANFORT [Suspect]
     Active Substance: BIMATOPROST\TIMOLOL
     Indication: GLAUCOMA
  4. CLOPIDOGREL [Concomitant]
     Active Substance: CLOPIDOGREL BISULFATE
  5. CANDESARTAN. [Concomitant]
     Active Substance: CANDESARTAN
     Dosage: 12 MG, QD
  6. LATANOPROST. [Concomitant]
     Active Substance: LATANOPROST

REACTIONS (14)
  - Eye disorder [Unknown]
  - General physical health deterioration [Unknown]
  - Asthenia [Unknown]
  - Eye swelling [Recovering/Resolving]
  - Skin hyperpigmentation [Unknown]
  - Goitre [Recovered/Resolved with Sequelae]
  - Growth of eyelashes [Unknown]
  - Blood pressure increased [Unknown]
  - Malaise [Unknown]
  - Stress [Unknown]
  - Blood pressure fluctuation [Unknown]
  - Fatigue [Unknown]
  - Angina pectoris [Unknown]
  - Diplopia [Recovered/Resolved]

NARRATIVE: CASE EVENT DATE: 202005
